FAERS Safety Report 20143938 (Version 4)
Quarter: 2022Q4

REPORT INFORMATION
  Report Type: Report from Study
  Country: US (occurrence: None)
  Receive Date: 20211203
  Receipt Date: 20221227
  Transmission Date: 20230112
  Serious: Yes (Life-Threatening, Hospitalization)
  Sender: FDA-Public Use
  Company Number: US-Merck Healthcare KGaA-9284339

PATIENT
  Age: 55 Year
  Sex: Female
  Weight: 61 kg

DRUGS (3)
  1. REBIF [Suspect]
     Active Substance: INTERFERON BETA-1A
     Indication: Multiple sclerosis
     Route: 058
     Dates: start: 20110418
  2. REBIF [Suspect]
     Active Substance: INTERFERON BETA-1A
     Route: 058
     Dates: start: 201603
  3. CELECOXIB [Concomitant]
     Active Substance: CELECOXIB
     Indication: Product used for unknown indication
     Route: 048

REACTIONS (7)
  - Syncope [Recovered/Resolved]
  - Atrioventricular block [Recovering/Resolving]
  - Ventricular extrasystoles [Recovering/Resolving]
  - Renal pain [Unknown]
  - Muscular weakness [Unknown]
  - Back pain [Unknown]
  - Dehydration [Unknown]

NARRATIVE: CASE EVENT DATE: 20210905
